FAERS Safety Report 8485527-8 (Version None)
Quarter: 2012Q3

REPORT INFORMATION
  Report Type: 
  Country: None (occurrence: None)
  Receive Date: 20120703
  Receipt Date: 20120629
  Transmission Date: 20120928
  Serious: Yes (Hospitalization)
  Sender: FDA-Public Use
  Company Number: US-ROCHE-1083520

PATIENT
  Sex: Male
  Weight: 80.358 kg

DRUGS (2)
  1. AVASTIN [Suspect]
     Indication: COLORECTAL CANCER
     Route: 042
     Dates: start: 20120501
  2. AVASTIN [Suspect]
     Dosage: REINTRODUCED

REACTIONS (2)
  - OEDEMA PERIPHERAL [None]
  - LOCALISED INFECTION [None]
